FAERS Safety Report 5204957-0 (Version None)
Quarter: 2007Q1

REPORT INFORMATION
  Report Type: 
  Country: None (occurrence: None)
  Receive Date: 20070110
  Receipt Date: 20060915
  Transmission Date: 20070707
  Serious: Yes (Other)
  Sender: FDA-Public Use
  Company Number: US-BRISTOL-MYERS SQUIBB COMPANY-13510557

PATIENT
  Age: 46 Year
  Sex: Female

DRUGS (8)
  1. ABILIFY [Suspect]
     Indication: BIPOLAR DISORDER
     Dates: start: 20051215
  2. WELLBUTRIN XL [Concomitant]
  3. LAMICTAL [Concomitant]
  4. CONCERTA [Concomitant]
  5. LUNESTA [Concomitant]
  6. NEXIUM [Concomitant]
  7. ACTOS [Concomitant]
  8. LIPITOR [Concomitant]

REACTIONS (5)
  - MUSCULOSKELETAL STIFFNESS [None]
  - NERVOUSNESS [None]
  - NEUROLEPTIC MALIGNANT SYNDROME [None]
  - PAIN [None]
  - PYREXIA [None]
